FAERS Safety Report 12907280 (Version 2)
Quarter: 2016Q4

REPORT INFORMATION
  Report Type: Spontaneous
  Country: JP (occurrence: JP)
  Receive Date: 20161103
  Receipt Date: 20161202
  Transmission Date: 20170207
  Serious: Yes (Hospitalization, Other)
  Sender: FDA-Public Use
  Company Number: JP-009507513-1610JPN014843

PATIENT
  Age: 7 Decade
  Sex: Male

DRUGS (1)
  1. BELSOMRA [Suspect]
     Active Substance: SUVOREXANT
     Indication: INSOMNIA
     Dosage: 0.25 DF, PRN (TOOK WHEN FEELING SLEEPLESS)
     Route: 048

REACTIONS (2)
  - Intentional underdose [Unknown]
  - Adverse event [Unknown]
